FAERS Safety Report 5039696-2 (Version None)
Quarter: 2006Q2

REPORT INFORMATION
  Report Type: 
  Country: None (occurrence: None)
  Receive Date: 20060601
  Receipt Date: 20060118
  Transmission Date: 20061013
  Serious: No
  Sender: FDA-Public Use
  Company Number: 2006PV007302

PATIENT
  Age: 57 Year
  Sex: Female
  Weight: 97.0698 kg

DRUGS (5)
  1. BYETTA [Suspect]
     Indication: DIABETES MELLITUS
     Dosage: SEE IMAGE
     Route: 058
     Dates: start: 20051101, end: 20051201
  2. BYETTA [Suspect]
     Indication: DIABETES MELLITUS
     Dosage: SEE IMAGE
     Route: 058
     Dates: start: 20051223, end: 20051201
  3. BYETTA [Suspect]
     Indication: DIABETES MELLITUS
     Dosage: SEE IMAGE
     Route: 058
     Dates: start: 20060102
  4. LANTUS [Concomitant]
  5. HUMALOG [Concomitant]

REACTIONS (15)
  - BLOOD GLUCOSE DECREASED [None]
  - BLOOD GLUCOSE INCREASED [None]
  - CONFUSIONAL STATE [None]
  - COUGH [None]
  - CRYING [None]
  - DECREASED APPETITE [None]
  - DRUG ADMINISTRATION ERROR [None]
  - FEELING COLD [None]
  - HEADACHE [None]
  - MALAISE [None]
  - MEDICATION ERROR [None]
  - NAUSEA [None]
  - PARANASAL SINUS DISCOMFORT [None]
  - TREMOR [None]
  - WEIGHT DECREASED [None]
